FAERS Safety Report 8934966 (Version 1)
Quarter: 2012Q4

REPORT INFORMATION
  Report Type: 
  Country: FR (occurrence: FR)
  Receive Date: 20121129
  Receipt Date: 20121129
  Transmission Date: 20130627
  Serious: Yes (Life-Threatening, Hospitalization)
  Sender: FDA-Public Use
  Company Number: FR-UCBSA-071957

PATIENT
  Age: 62 Year
  Sex: Female

DRUGS (16)
  1. KEPPRA [Suspect]
     Indication: CONVULSION
     Route: 048
     Dates: start: 20120806, end: 20121020
  2. KEPPRA [Suspect]
     Indication: CONVULSION
     Route: 048
     Dates: start: 20121021
  3. BACTRIM [Suspect]
     Indication: INFECTION
     Route: 048
     Dates: start: 20120904, end: 20121016
  4. TEMODAL [Suspect]
     Indication: GLIOBLASTOMA
     Dosage: DAILY DOSE : 100 MG
     Route: 048
     Dates: start: 20120912, end: 20121010
  5. DIFFU-K [Concomitant]
  6. SOLUPRED [Concomitant]
  7. INEXIUM [Concomitant]
  8. ZOPHREN [Concomitant]
  9. MYOLASTAN [Concomitant]
  10. PIPERACILLINE [Concomitant]
  11. TAZOBACTAM [Concomitant]
  12. CONTRAMAL [Concomitant]
  13. TOPALGIC [Concomitant]
  14. INSTANYL [Concomitant]
  15. METHYLPREDNISOLONE [Concomitant]
  16. NEUPOGEN [Concomitant]

REACTIONS (5)
  - Thrombocytopenia [Not Recovered/Not Resolved]
  - Anaemia [Not Recovered/Not Resolved]
  - Leukopenia [Not Recovered/Not Resolved]
  - Infection [Unknown]
  - Inappropriate schedule of drug administration [Unknown]
